FAERS Safety Report 25933540 (Version 4)
Quarter: 2025Q4

REPORT INFORMATION
  Report Type: Spontaneous
  Country: US (occurrence: US)
  Receive Date: 20251017
  Receipt Date: 20251204
  Transmission Date: 20260117
  Serious: Yes (Death, Hospitalization, Other)
  Sender: ORPHALAN
  Company Number: US-ORPHALAN-US-ORP-25-00250

PATIENT

DRUGS (1)
  1. CUVRIOR [Suspect]
     Active Substance: TRIENTINE TETRAHYDROCHLORIDE
     Indication: Hepato-lenticular degeneration
     Dosage: 300 MILLIGRAM, QD, ON AN EMPTY STOMACH 1HOUR BEFORE OR 2 HOURS AFTER MEALS
     Route: 048
     Dates: start: 20250807

REACTIONS (9)
  - Death [Fatal]
  - Hypertensive crisis [Not Recovered/Not Resolved]
  - Gallbladder disorder [Recovered/Resolved]
  - Lethargy [Recovered/Resolved]
  - Malaise [Recovered/Resolved]
  - Nausea [Recovered/Resolved]
  - Vomiting [Not Recovered/Not Resolved]
  - Heart rate decreased [Not Recovered/Not Resolved]
  - Dysphagia [Not Recovered/Not Resolved]
